FAERS Safety Report 7065371-9 (Version None)
Quarter: 2010Q4

REPORT INFORMATION
  Report Type: 
  Country: None (occurrence: None)
  Receive Date: 20101027
  Receipt Date: 20101015
  Transmission Date: 20110411
  Serious: Yes (Hospitalization)
  Sender: FDA-Public Use
  Company Number: FR-ROCHE-731724

PATIENT
  Sex: Male

DRUGS (3)
  1. MYCOPHENOLATE MOFETIL [Suspect]
     Dosage: PERMANANTLY DISCONTINUED, DOSE REPORTED: 500 MG X 6/DAY AND 250 MG/DAY
     Route: 048
     Dates: start: 20100514, end: 20101001
  2. CERTICAN [Suspect]
     Dosage: DOSE REPORTED:0.5 MG X 3DAY
     Route: 048
     Dates: start: 20100701
  3. SOLUPRED [Suspect]
     Dosage: 5 MG X 2/DAY
     Route: 048
     Dates: start: 20100514

REACTIONS (2)
  - BLOOD CREATININE INCREASED [None]
  - TRANSPLANT REJECTION [None]
